FAERS Safety Report 25578478 (Version 1)
Quarter: 2025Q3

REPORT INFORMATION
  Report Type: Spontaneous
  Country: US (occurrence: US)
  Receive Date: 20250718
  Receipt Date: 20250718
  Transmission Date: 20251021
  Serious: Yes (Other)
  Sender: ABBVIE
  Company Number: US-ABBVIE-6373446

PATIENT
  Sex: Male

DRUGS (1)
  1. REFRESH RELIEVA PF [Suspect]
     Active Substance: CARBOXYMETHYLCELLULOSE SODIUM\GLYCERIN
     Indication: Dry eye
     Route: 047

REACTIONS (5)
  - Cerebrovascular accident [Unknown]
  - Contraindicated product administered [Unknown]
  - Eye irritation [Recovering/Resolving]
  - Device issue [Not Recovered/Not Resolved]
  - Hypoacusis [Unknown]
